FAERS Safety Report 6197220-5 (Version None)
Quarter: 2009Q2

REPORT INFORMATION
  Report Type: 
  Country: None (occurrence: None)
  Receive Date: 20090521
  Receipt Date: 20071226
  Transmission Date: 20091009
  Serious: Yes (Hospitalization, Other)
  Sender: FDA-Public Use
  Company Number: US-ASTRAZENECA-2006UW10682

PATIENT
  Age: 9159 Day
  Sex: Male
  Weight: 116.1 kg

DRUGS (45)
  1. SEROQUEL [Suspect]
     Indication: INSOMNIA
     Route: 048
     Dates: start: 20010301, end: 20060301
  2. SEROQUEL [Suspect]
     Indication: AFFECTIVE DISORDER
     Route: 048
     Dates: start: 20010301, end: 20060301
  3. SEROQUEL [Suspect]
     Indication: MANIA
     Route: 048
     Dates: start: 20010301, end: 20060301
  4. SEROQUEL [Suspect]
     Route: 048
     Dates: start: 20021106
  5. SEROQUEL [Suspect]
     Route: 048
     Dates: start: 20021106
  6. SEROQUEL [Suspect]
     Route: 048
     Dates: start: 20021106
  7. NEXIUM [Concomitant]
     Route: 048
  8. TOPAMAX [Concomitant]
     Dosage: 25 TO 100 MG
     Route: 048
     Dates: start: 20050107
  9. AMBIEN [Concomitant]
     Indication: SLEEP DISORDER
     Dosage: 5 TO 10 MG
     Route: 048
     Dates: start: 20021106
  10. PERCOCET [Concomitant]
     Route: 048
  11. CARAFATE [Concomitant]
     Route: 048
     Dates: start: 20050620
  12. CARISOPRODOL [Concomitant]
     Route: 048
  13. COGENTIN [Concomitant]
  14. BUSPAR [Concomitant]
     Route: 048
  15. ABILIFY [Concomitant]
     Route: 048
  16. EFFEXOR [Concomitant]
     Route: 048
  17. DEPAKOTE [Concomitant]
     Route: 048
  18. WELLBUTRIN [Concomitant]
     Route: 048
  19. IMITREX [Concomitant]
  20. RESTORIL [Concomitant]
     Route: 048
  21. GEODON [Concomitant]
     Route: 048
  22. BENTYL [Concomitant]
     Indication: ABDOMINAL DISCOMFORT
     Dosage: 10 TO 20 MG
     Route: 048
  23. ADVAIR HFA [Concomitant]
     Dosage: 250 TO 50 MG
     Route: 055
  24. LANTUS [Concomitant]
  25. LEXAPRO [Concomitant]
     Route: 048
  26. NEURONTIN [Concomitant]
     Route: 048
  27. CLONAZEPAM [Concomitant]
     Dosage: 1 TO 2 MG
     Route: 048
  28. EPHEDRINE [Concomitant]
  29. NEOSTIGMINE [Concomitant]
     Route: 048
  30. PHENYTOIN [Concomitant]
     Route: 048
  31. POTASSIUM CHLORIDE [Concomitant]
     Route: 048
  32. HYDROXYZINE HYDROCHLORIDE [Concomitant]
  33. COLACE [Concomitant]
     Route: 048
  34. COMBIVENT [Concomitant]
     Route: 055
  35. FAMOTIDINE [Concomitant]
     Route: 048
  36. ALPRAZOLAM [Concomitant]
     Dosage: 1 TO 2 MG
     Route: 048
  37. SOLU-MEDROL [Concomitant]
     Route: 042
  38. IRON [Concomitant]
     Route: 048
  39. DIAZEPAM [Concomitant]
     Dosage: 2 TO 10 MG
     Route: 048
  40. ATENOLOL [Concomitant]
     Route: 048
  41. PHENOBARBITAL [Concomitant]
     Route: 048
  42. SKELAXIN [Concomitant]
     Dosage: 400 TO 800 MG
     Route: 048
  43. VERAPAMIL [Concomitant]
     Route: 048
  44. CATAPRES [Concomitant]
     Route: 048
  45. ATIVAN [Concomitant]
     Route: 048

REACTIONS (45)
  - ABDOMINAL PAIN [None]
  - ANAEMIA [None]
  - ASTHMA [None]
  - CHEST PAIN [None]
  - CHRONIC OBSTRUCTIVE PULMONARY DISEASE [None]
  - COLITIS [None]
  - CONVULSION [None]
  - DIABETES MELLITUS [None]
  - DIPLOPIA [None]
  - DIZZINESS [None]
  - DRUG ABUSE [None]
  - DYSARTHRIA [None]
  - FATIGUE [None]
  - GASTROENTERITIS [None]
  - HAEMATEMESIS [None]
  - HALLUCINATION, AUDITORY [None]
  - HEPATITIS C [None]
  - HYPERKALAEMIA [None]
  - HYPOVOLAEMIA [None]
  - INSOMNIA [None]
  - IRON DEFICIENCY ANAEMIA [None]
  - JOINT DISLOCATION [None]
  - LARYNGITIS [None]
  - LUMBAR RADICULOPATHY [None]
  - MALNUTRITION [None]
  - MELAENA [None]
  - MIGRAINE [None]
  - MYOFASCIAL PAIN SYNDROME [None]
  - OVERDOSE [None]
  - PANIC ATTACK [None]
  - PARAESTHESIA [None]
  - PERITONEAL ABSCESS [None]
  - PERSONALITY DISORDER [None]
  - PLEURAL EFFUSION [None]
  - PNEUMONIA [None]
  - RECTAL HAEMORRHAGE [None]
  - SCHIZOPHRENIA [None]
  - SUICIDAL IDEATION [None]
  - SYNCOPE [None]
  - THROMBOCYTHAEMIA [None]
  - TYPE 1 DIABETES MELLITUS [None]
  - UMBILICAL HERNIA [None]
  - VERTIGO [None]
  - VISION BLURRED [None]
  - WHEEZING [None]
